FAERS Safety Report 9334896 (Version 1)
Quarter: 2013Q2

REPORT INFORMATION
  Report Type: Spontaneous
  Country: AU (occurrence: AU)
  Receive Date: 20130606
  Receipt Date: 20130606
  Transmission Date: 20140414
  Serious: Yes (Hospitalization)
  Sender: FDA-Public Use
  Company Number: PHHY2013AU055672

PATIENT
  Age: 66 Year
  Sex: Male

DRUGS (7)
  1. AMLODIPINE [Suspect]
     Dosage: 10 MG, DAILY
  2. RAMIPRIL [Suspect]
     Dosage: 10 MG DAILY
  3. METOPROLOL [Suspect]
     Dosage: 150 MG, DAILY
  4. ASPIRIN [Concomitant]
  5. EZETIMIBE W/SIMVASTATIN [Concomitant]
  6. TRAMADOL HYDROCHLORIDE [Concomitant]
     Dosage: 150 MG, DAILY
  7. THIAMINE [Concomitant]

REACTIONS (1)
  - Syncope [Recovered/Resolved]
